FAERS Safety Report 15845413 (Version 4)
Quarter: 2022Q2

REPORT INFORMATION
  Report Type: Report from Study
  Country: CA (occurrence: CA)
  Receive Date: 20190119
  Receipt Date: 20220424
  Transmission Date: 20220721
  Serious: Yes (Death, Other)
  Sender: FDA-Public Use
  Company Number: PHHY2019CA008649

PATIENT
  Age: 64 Year
  Sex: Male

DRUGS (6)
  1. SANDOSTATIN LAR DEPOT [Suspect]
     Active Substance: OCTREOTIDE ACETATE
     Indication: Carcinoid tumour
     Dosage: 50 MG, QMO (EVERY 4 WEEKS)
     Route: 030
     Dates: start: 20160421
  2. SANDOSTATIN LAR DEPOT [Suspect]
     Active Substance: OCTREOTIDE ACETATE
  3. SANDOSTATIN LAR DEPOT [Suspect]
     Active Substance: OCTREOTIDE ACETATE
  4. AFINITOR [Suspect]
     Active Substance: EVEROLIMUS
     Indication: Neuroendocrine tumour
     Dosage: 10 MG, QD
     Route: 048
     Dates: start: 20190113, end: 20201020
  5. AFINITOR [Suspect]
     Active Substance: EVEROLIMUS
     Dosage: 10 MG, QD
     Route: 048
     Dates: start: 202101
  6. AFINITOR [Suspect]
     Active Substance: EVEROLIMUS
     Dosage: 10 MG, QD
     Route: 048
     Dates: start: 20210203

REACTIONS (11)
  - Death [Fatal]
  - Rib fracture [Unknown]
  - Influenza [Unknown]
  - Cough [Unknown]
  - Lung disorder [Unknown]
  - Joint swelling [Unknown]
  - Weight decreased [Unknown]
  - Malaise [Unknown]
  - Diarrhoea [Unknown]
  - Rash [Unknown]
  - Asthenia [Unknown]

NARRATIVE: CASE EVENT DATE: 20190108
